FAERS Safety Report 23457938 (Version 2)
Quarter: 2024Q2

REPORT INFORMATION
  Report Type: Spontaneous
  Country: US (occurrence: US)
  Receive Date: 20240130
  Receipt Date: 20240422
  Transmission Date: 20240715
  Serious: Yes (Death, Hospitalization, Other)
  Sender: FDA-Public Use
  Company Number: US-BRISTOL-MYERS SQUIBB COMPANY-2024-014633

PATIENT
  Age: 69 Year
  Sex: Male
  Weight: 80.28 kg

DRUGS (1)
  1. REVLIMID [Suspect]
     Active Substance: LENALIDOMIDE
     Indication: Benign neoplasm
     Dosage: FREQUENCY: 3 WKS ON/1 WK OFF
     Route: 048

REACTIONS (3)
  - Hospitalisation [Not Recovered/Not Resolved]
  - Off label use [Unknown]
  - Death [Fatal]
